FAERS Safety Report 6385971-9 (Version None)
Quarter: 2009Q4

REPORT INFORMATION
  Report Type: 
  Country: None (occurrence: None)
  Receive Date: 20091002
  Receipt Date: 20090224
  Transmission Date: 20100525
  Serious: No
  Sender: FDA-Public Use
  Company Number: US-ASTRAZENECA-2009UW05087

PATIENT
  Age: 59 Year
  Sex: Female
  Weight: 86.2 kg

DRUGS (3)
  1. ARIMIDEX [Suspect]
     Indication: BREAST CANCER
     Route: 048
     Dates: start: 20050201
  2. TRICOR [Concomitant]
  3. ZOCOR [Concomitant]

REACTIONS (1)
  - PALPITATIONS [None]
